FAERS Safety Report 25613287 (Version 1)
Quarter: 2025Q3

REPORT INFORMATION
  Report Type: Spontaneous
  Country: CN (occurrence: CN)
  Receive Date: 20250728
  Receipt Date: 20250728
  Transmission Date: 20251021
  Serious: Yes (Hospitalization)
  Sender: ELI LILLY AND COMPANY
  Company Number: CN-ELI_LILLY_AND_COMPANY-CN202507017869

PATIENT
  Age: 22 Year
  Sex: Female
  Weight: 58 kg

DRUGS (4)
  1. FLUOXETINE HYDROCHLORIDE [Suspect]
     Active Substance: FLUOXETINE HYDROCHLORIDE
     Indication: Intentional self-injury
     Route: 048
     Dates: start: 20250630, end: 20250630
  2. OXAZEPAM [Suspect]
     Active Substance: OXAZEPAM
     Indication: Intentional self-injury
     Route: 048
     Dates: start: 20250630, end: 20250630
  3. QUETIAPINE [Suspect]
     Active Substance: QUETIAPINE
     Indication: Intentional self-injury
     Route: 048
     Dates: start: 20250630, end: 20250630
  4. SODIUM ACETATE [Concomitant]
     Active Substance: SODIUM ACETATE
     Indication: Toxicity to various agents
     Route: 041
     Dates: start: 20250630

REACTIONS (3)
  - Toxicity to various agents [Recovering/Resolving]
  - Intentional self-injury [Unknown]
  - Intentional overdose [Unknown]

NARRATIVE: CASE EVENT DATE: 20250630
